FAERS Safety Report 25806157 (Version 1)
Quarter: 2025Q3

REPORT INFORMATION
  Report Type: Spontaneous
  Country: CA (occurrence: CA)
  Receive Date: 20250916
  Receipt Date: 20250916
  Transmission Date: 20251020
  Serious: Yes (Other)
  Sender: CELLTRION
  Company Number: CA-CELLTRION INC.-2025CA032779

PATIENT

DRUGS (1)
  1. INFLIXIMAB [Suspect]
     Active Substance: INFLIXIMAB
     Indication: Crohn^s disease
     Dosage: MAINTENANCE - 300 MG - EVERY 4 WEEKS
     Route: 042
     Dates: start: 20250322

REACTIONS (3)
  - Stoma site irritation [Unknown]
  - Intentional product use issue [Unknown]
  - Overdose [Unknown]
